FAERS Safety Report 7732511-5 (Version None)
Quarter: 2011Q3

REPORT INFORMATION
  Report Type: 
  Country: None (occurrence: None)
  Receive Date: 20110906
  Receipt Date: 20110830
  Transmission Date: 20111222
  Serious: Yes (Disabling, Other)
  Sender: FDA-Public Use
  Company Number: BR-ABBOTT-11P-020-0850540-00

PATIENT
  Sex: Female
  Weight: 48 kg

DRUGS (3)
  1. DEPAKOTE [Suspect]
     Indication: PRODUCT USED FOR UNKNOWN INDICATION
     Route: 048
     Dates: start: 20010101
  2. DEPAKOTE ER [Suspect]
     Indication: PRODUCT USED FOR UNKNOWN INDICATION
  3. AKINETON [Concomitant]
     Indication: PRODUCT USED FOR UNKNOWN INDICATION

REACTIONS (13)
  - SOMNAMBULISM [None]
  - DISABILITY [None]
  - ANAPHYLACTIC SHOCK [None]
  - ANAESTHETIC COMPLICATION [None]
  - CARDIAC ARREST [None]
  - CEREBRAL LOBOTOMY [None]
  - ASPHYXIA [None]
  - EYE DISORDER [None]
  - RESPIRATORY ARREST [None]
  - FEELING ABNORMAL [None]
  - COMA [None]
  - BLOOD CHOLESTEROL [None]
  - CEREBRAL PALSY [None]
